FAERS Safety Report 5698243-2 (Version None)
Quarter: 2008Q2

REPORT INFORMATION
  Report Type: 
  Country: None (occurrence: None)
  Receive Date: 20080403
  Receipt Date: 20080321
  Transmission Date: 20081010
  Serious: Yes (Hospitalization, Other)
  Sender: FDA-Public Use
  Company Number: US019974

PATIENT
  Age: 34 Year
  Sex: Male

DRUGS (1)
  1. TRISENOX [Suspect]
     Indication: ACUTE PROMYELOCYTIC LEUKAEMIA
     Dosage: 12 MG QD; INTRAVENOUS DRIP
     Route: 041
     Dates: start: 20070406, end: 20070409

REACTIONS (2)
  - ALANINE AMINOTRANSFERASE INCREASED [None]
  - VENTRICULAR EXTRASYSTOLES [None]
